FAERS Safety Report 6183688-7 (Version None)
Quarter: 2009Q2

REPORT INFORMATION
  Report Type: 
  Country: None (occurrence: None)
  Receive Date: 20090508
  Receipt Date: 20090325
  Transmission Date: 20091009
  Serious: Yes (Hospitalization)
  Sender: FDA-Public Use
  Company Number: NO-PFIZER INC-2009156094

PATIENT
  Age: 67 Year

DRUGS (17)
  1. BLINDED *PLACEBO [Suspect]
     Indication: DIABETIC FOOT
     Dosage: UNK
     Dates: start: 20081016, end: 20090101
  2. BLINDED DALTEPARIN SODIUM [Suspect]
     Indication: DIABETIC FOOT
     Dosage: UNK
     Dates: start: 20081016, end: 20090101
  3. NOVORAPID [Concomitant]
     Dosage: UNK
  4. INSULATARD [Concomitant]
     Dosage: UNK
  5. ALBYL-E [Concomitant]
     Dosage: UNK
     Route: 048
  6. ALLOPUR [Concomitant]
     Dosage: UNK
     Route: 048
  7. AMLODIPINE [Concomitant]
     Dosage: UNK
     Route: 048
  8. ATENOLOL [Concomitant]
     Dosage: UNK
     Route: 048
  9. EZETROL [Concomitant]
     Dosage: UNK
     Route: 048
     Dates: start: 20080312
  10. FURIX [Concomitant]
     Dosage: UNK
     Route: 048
  11. LISINOPRIL [Concomitant]
     Dosage: UNK
     Route: 048
  12. METFORMIN [Concomitant]
     Dosage: UNK
     Route: 048
  13. SIMVASTATIN [Concomitant]
     Dosage: UNK
     Route: 048
  14. TRENTAL ^HOECHST^ [Concomitant]
     Dosage: UNK
     Route: 048
  15. VITAMIN E [Concomitant]
     Dosage: UNK
  16. VITAMINE C [Concomitant]
     Dosage: UNK
  17. LOVAZA [Concomitant]
     Dosage: UNK
     Route: 048

REACTIONS (3)
  - NECROSIS [None]
  - POST PROCEDURAL HAEMORRHAGE [None]
  - SEPSIS [None]
